FAERS Safety Report 19089355 (Version 1)
Quarter: 2021Q2

REPORT INFORMATION
  Report Type: Spontaneous
  Country: US (occurrence: US)
  Receive Date: 20210403
  Receipt Date: 20210403
  Transmission Date: 20210717
  Serious: Yes (Other)
  Sender: FDA-Public Use
  Company Number: US-CIPLA LTD.-2021US02564

PATIENT

DRUGS (3)
  1. TOPOTECAN [Suspect]
     Active Substance: TOPOTECAN HYDROCHLORIDE
     Indication: RETINOBLASTOMA
     Dosage: 2 MILLIGRAM (DURING 2, 3, 4, 5, 6 CYCLE)
     Route: 013
  2. CARBOPLATIN. [Suspect]
     Active Substance: CARBOPLATIN
     Indication: RETINOBLASTOMA
     Dosage: 50 MILLIGRAM (DURING 2, 3, 4, 5, 6 CYCLE)
     Route: 013
  3. MELPHALAN. [Suspect]
     Active Substance: MELPHALAN
     Indication: RETINOBLASTOMA
     Dosage: 4 MILLIGRAM (DURING ALL 6 CYCLES)
     Route: 013

REACTIONS (3)
  - Neutropenia [Unknown]
  - Toxicity to various agents [Unknown]
  - Cytopenia [Unknown]
